FAERS Safety Report 8026685 (Version 3)
Quarter: 2012Q4

REPORT INFORMATION
  Report Type: Report from Study
  Country: NL (occurrence: NL)
  Receive Date: 20110708
  Receipt Date: 20121212
  Transmission Date: 20130627
  Serious: Yes (Death, Hospitalization)
  Sender: FDA-Public Use
  Company Number: NL-GLAXOSMITHKLINE-B0731411A

PATIENT
  Age: 47 Year
  Sex: Female
  Weight: 81.9 kg

DRUGS (12)
  1. PAZOPANIB [Suspect]
     Indication: BREAST NEOPLASM
     Dosage: 400MG Per day
     Route: 048
     Dates: start: 20110602
  2. DOCETAXEL [Suspect]
     Indication: BREAST NEOPLASM
     Dosage: 50MGM2 Every 3 weeks
     Route: 042
     Dates: start: 20110601
  3. AMLODIPINE [Suspect]
     Indication: HYPERTENSION
     Dosage: 5MG Per day
     Route: 048
     Dates: start: 20110621, end: 20110630
  4. HYDROCHLOROTHIAZIDE [Concomitant]
     Indication: HYPERTENSION
     Route: 048
     Dates: start: 20101013
  5. OMEPRAZOL [Concomitant]
     Dosage: 40MG per day
     Route: 048
     Dates: start: 20101013
  6. TEMAZEPAM [Concomitant]
     Dosage: 10MG Per day
     Route: 048
     Dates: start: 20101013
  7. UNKNOWN MEDICATION [Concomitant]
     Route: 051
     Dates: start: 20101130, end: 20110623
  8. MOVICOLON [Concomitant]
     Route: 048
     Dates: start: 20110118, end: 20110623
  9. DEXAMETHASONE [Concomitant]
     Dosage: 8MG Twice per day
     Route: 048
     Dates: start: 20110622, end: 20110623
  10. CARBOPLATIN [Concomitant]
  11. PACLITAXEL [Concomitant]
  12. UNKNOWN DRUG [Concomitant]

REACTIONS (3)
  - Malaise [Fatal]
  - Dyspnoea [Fatal]
  - Cardiovascular disorder [Fatal]
